FAERS Safety Report 9012097 (Version 2)
Quarter: 2013Q1

REPORT INFORMATION
  Report Type: Spontaneous
  Country: US (occurrence: None)
  Receive Date: 20121228
  Receipt Date: 20130213
  Transmission Date: 20140127
  Serious: Yes (Death, Other)
  Sender: FDA-Public Use
  Company Number: 2012P1067824

PATIENT
  Age: 72 Year
  Sex: Female

DRUGS (2)
  1. INFUMORPH [Suspect]
     Indication: POST LAMINECTOMY SYNDROME
  2. INFUMORPH [Suspect]
     Indication: SPINAL PAIN

REACTIONS (2)
  - Logorrhoea [None]
  - Post procedural pulmonary embolism [None]
